FAERS Safety Report 16074621 (Version 1)
Quarter: 2019Q1

REPORT INFORMATION
  Report Type: Spontaneous
  Country: US (occurrence: US)
  Receive Date: 20190314
  Receipt Date: 20190314
  Transmission Date: 20190418
  Serious: No
  Sender: FDA-Public Use
  Company Number: US-NEXGEN PHARMA, INC.-2064022

PATIENT
  Age: 10 Year
  Sex: Male

DRUGS (1)
  1. MECAMYLAMINE HYDROCHLORIDE. [Suspect]
     Active Substance: MECAMYLAMINE HYDROCHLORIDE
     Indication: TIC
     Route: 048
     Dates: start: 2018

REACTIONS (1)
  - Off label use [Unknown]
